FAERS Safety Report 6920053-6 (Version None)
Quarter: 2010Q3

REPORT INFORMATION
  Report Type: 
  Country: None (occurrence: None)
  Receive Date: 20100730
  Receipt Date: 20090928
  Transmission Date: 20110219
  Serious: Yes (Hospitalization)
  Sender: FDA-Public Use
  Company Number: OMPQ-PR-0909S-0833

PATIENT
  Age: 76 Year
  Sex: Female

DRUGS (1)
  1. OMNIPAQUE 140 [Suspect]
     Indication: LUMBAR RADICULOPATHY
     Dosage: 13 ML, SINGLE DOSE, I.T.
     Route: 038
     Dates: start: 20090916, end: 20090916

REACTIONS (5)
  - CSF WHITE BLOOD CELL COUNT INCREASED [None]
  - HEADACHE [None]
  - MENINGITIS VIRAL [None]
  - PAIN [None]
  - SOMNOLENCE [None]
